FAERS Safety Report 17730294 (Version 1)
Quarter: 2020Q2

REPORT INFORMATION
  Report Type: Spontaneous
  Country: PT (occurrence: PT)
  Receive Date: 20200430
  Receipt Date: 20200430
  Transmission Date: 20200714
  Serious: Yes (Death)
  Sender: FDA-Public Use
  Company Number: PT-MYLANLABS-2020M1042338

PATIENT
  Age: 30 Year
  Sex: Female

DRUGS (2)
  1. EVEROLIMUS. [Suspect]
     Active Substance: EVEROLIMUS
     Indication: METASTASES TO THE MEDIASTINUM
     Dosage: UNK
     Route: 065
  2. EVEROLIMUS. [Suspect]
     Active Substance: EVEROLIMUS
     Indication: RENAL CANCER

REACTIONS (3)
  - Renal cancer [Fatal]
  - Metastasis [Fatal]
  - Malignant neoplasm progression [Fatal]
